FAERS Safety Report 5002653-6 (Version None)
Quarter: 2006Q2

REPORT INFORMATION
  Report Type: 
  Country: None (occurrence: None)
  Receive Date: 20060510
  Receipt Date: 20060428
  Transmission Date: 20061013
  Serious: Yes (Hospitalization)
  Sender: FDA-Public Use
  Company Number: 8008083

PATIENT
  Age: 52 Year
  Sex: Female

DRUGS (7)
  1. KEPPRA [Suspect]
     Indication: EPILEPSY
     Dosage: 500 MG /D PO
     Route: 048
     Dates: start: 20041022, end: 20041028
  2. KEPPRA [Suspect]
     Indication: EPILEPSY
     Dosage: 1000 MG /D PO
     Route: 048
     Dates: start: 20041029, end: 20041108
  3. CARBAMAZEPINE [Suspect]
     Indication: EPILEPSY
     Dosage: 400 MG 2/D PO
     Route: 048
     Dates: start: 20011022, end: 20041107
  4. CARBAMAZEPINE [Suspect]
     Indication: EPILEPSY
     Dosage: 200 MG 2/D PO
     Route: 048
     Dates: start: 20041108, end: 20041205
  5. CARBAMAZEPINE [Suspect]
     Indication: EPILEPSY
     Dosage: 100 MG 2/D PO
     Route: 048
     Dates: start: 20041206, end: 20041208
  6. CARBAMAZEPINE [Suspect]
     Indication: EPILEPSY
     Dosage: 400 MG 2/D PO
     Route: 048
     Dates: start: 20041209
  7. VALPROATE SODIUM [Concomitant]

REACTIONS (9)
  - BONE MARROW FAILURE [None]
  - CONDITION AGGRAVATED [None]
  - CONVULSION [None]
  - DRUG LEVEL INCREASED [None]
  - HYPOPLASTIC ANAEMIA [None]
  - LETHARGY [None]
  - NAUSEA [None]
  - SOMNOLENCE [None]
  - VOMITING [None]
